FAERS Safety Report 7431896-7 (Version None)
Quarter: 2011Q2

REPORT INFORMATION
  Report Type: 
  Country: None (occurrence: None)
  Receive Date: 20110422
  Receipt Date: 20110418
  Transmission Date: 20111010
  Serious: Yes (Hospitalization, Other)
  Sender: FDA-Public Use
  Company Number: US-JNJFOC-20100806948

PATIENT
  Sex: Male
  Weight: 90.72 kg

DRUGS (2)
  1. LEVAQUIN [Suspect]
     Indication: URINARY TRACT INFECTION
     Route: 048
  2. LEVAQUIN [Suspect]
     Indication: PROSTATE INFECTION
     Route: 048

REACTIONS (6)
  - TENDON RUPTURE [None]
  - EPICONDYLITIS [None]
  - STRESS [None]
  - ROTATOR CUFF SYNDROME [None]
  - TENOSYNOVITIS [None]
  - JOINT INJURY [None]
